FAERS Safety Report 5910305-0 (Version None)
Quarter: 2008Q4

REPORT INFORMATION
  Report Type: 
  Country: None (occurrence: None)
  Receive Date: 20081007
  Receipt Date: 20071207
  Transmission Date: 20090506
  Serious: Yes (Other)
  Sender: FDA-Public Use
  Company Number: US-ASTRAZENECA-2007UW26217

PATIENT
  Age: 45 Year
  Sex: Female
  Weight: 95.7 kg

DRUGS (8)
  1. ARIMIDEX [Suspect]
     Indication: BREAST CANCER
     Route: 048
     Dates: start: 20070601
  2. EFFEXOR [Concomitant]
     Route: 048
  3. NABUMETONE [Concomitant]
     Route: 048
  4. GLUCOSAMINE W/CHONDROITIN [Concomitant]
     Route: 048
  5. CALCIUM W/VITAMIN D [Concomitant]
     Route: 048
  6. VITAMIN B COMPLEX CAP [Concomitant]
     Route: 048
  7. MULTI-VITAMINS [Concomitant]
     Route: 048
  8. KLONOPIN [Concomitant]

REACTIONS (5)
  - ARTHRALGIA [None]
  - CARPAL TUNNEL SYNDROME [None]
  - HYPOAESTHESIA [None]
  - MYALGIA [None]
  - NEUROPATHY PERIPHERAL [None]
